FAERS Safety Report 8957564 (Version 2)
Quarter: 2012Q4

REPORT INFORMATION
  Report Type: 
  Country: US (occurrence: US)
  Receive Date: 20121210
  Receipt Date: 20121226
  Transmission Date: 20130627
  Serious: Yes (Hospitalization, Other)
  Sender: FDA-Public Use
  Company Number: US-PFIZER INC-2012307757

PATIENT
  Age: 89 Year
  Sex: Male
  Weight: 74.83 kg

DRUGS (11)
  1. LIPITOR [Suspect]
     Indication: HIGH CHOLESTEROL
     Dosage: 40 mg, 1x/day
     Route: 048
  2. ATORVASTATIN CALCIUM [Suspect]
     Dosage: 40 mg, UNK
  3. KLOR-CON [Concomitant]
     Dosage: two tablets once a day
  4. AMLODIPINE [Concomitant]
     Dosage: 5 mg, 1x/day
  5. FUROSEMIDE [Concomitant]
     Dosage: 40 mg, 1x/day
     Route: 048
  6. AVAPRO [Concomitant]
     Dosage: 300 mg, 1x/day
     Route: 048
  7. MAGNESIUM OXIDE [Concomitant]
     Dosage: 420 mg, 1x/day
     Route: 048
  8. PLAVIX [Concomitant]
     Dosage: 75 mg, UNK
  9. NIASPAN [Concomitant]
     Dosage: 500 mg, UNK
  10. ATENOLOL [Concomitant]
     Dosage: 100 mg, UNK
  11. MINITRAN [Concomitant]
     Dosage: UNK

REACTIONS (9)
  - Arthropathy [Unknown]
  - Pain [Unknown]
  - Tremor [Unknown]
  - Hyperhidrosis [Unknown]
  - Asthenia [Unknown]
  - Thrombosis [Not Recovered/Not Resolved]
  - Muscle spasms [Not Recovered/Not Resolved]
  - Body height decreased [Not Recovered/Not Resolved]
  - Muscle atrophy [Not Recovered/Not Resolved]
